FAERS Safety Report 5084324-3 (Version None)
Quarter: 2006Q3

REPORT INFORMATION
  Report Type: 
  Country: None (occurrence: None)
  Receive Date: 20060821
  Receipt Date: 20060810
  Transmission Date: 20061208
  Serious: Yes (Hospitalization)
  Sender: FDA-Public Use
  Company Number: FR-BRISTOL-MYERS SQUIBB COMPANY-13471875

PATIENT
  Age: 74 Year
  Sex: Female

DRUGS (14)
  1. COUMADIN [Suspect]
     Indication: ATRIAL FIBRILLATION
     Route: 048
     Dates: start: 20060713, end: 20060718
  2. COUMADIN [Interacting]
     Indication: ATRIAL FLUTTER
     Route: 048
     Dates: start: 20060713, end: 20060718
  3. LOVENOX [Interacting]
     Dosage: 80 MG/0.8 ML
     Dates: start: 20060712
  4. COVERSYL [Concomitant]
  5. PREDNISONE [Concomitant]
  6. HYTACAND [Concomitant]
     Dosage: 16 MG/25 MG
  7. GARDENAL [Concomitant]
  8. BETAHISTINE [Concomitant]
  9. OXYBUTYNIN [Concomitant]
  10. OMEPRAZOLE [Concomitant]
  11. TOPALGIC [Concomitant]
  12. TRAMADOL HCL [Concomitant]
  13. ESBERIVEN [Concomitant]
  14. PROTELOS [Concomitant]

REACTIONS (4)
  - ANAEMIA [None]
  - DRUG INTERACTION [None]
  - HAEMATOMA [None]
  - RENAL FAILURE [None]
